FAERS Safety Report 10176992 (Version 1)
Quarter: 2014Q2

REPORT INFORMATION
  Report Type: Report from Study
  Country: JP (occurrence: JP)
  Receive Date: 20140516
  Receipt Date: 20140516
  Transmission Date: 20141212
  Serious: Yes (Hospitalization)
  Sender: FDA-Public Use
  Company Number: JP-TEVA-481902USA

PATIENT
  Age: 70 Year
  Sex: Male
  Weight: 52.4 kg

DRUGS (14)
  1. BENDAMUSTINE [Suspect]
     Indication: NON-HODGKIN^S LYMPHOMA
     Route: 042
     Dates: start: 20111101
  2. RITUXIMAB [Suspect]
     Indication: NON-HODGKIN^S LYMPHOMA
     Route: 042
     Dates: start: 20111101
  3. KYTRIL [Concomitant]
     Indication: PROPHYLAXIS OF NAUSEA AND VOMITING
     Dosage: 3 MG PER DOSE
     Route: 042
     Dates: start: 20111227, end: 20111228
  4. DEXART [Concomitant]
     Indication: PROPHYLAXIS OF NAUSEA AND VOMITING
     Route: 042
     Dates: start: 20111227, end: 20111228
  5. VFEND [Concomitant]
     Indication: PROPHYLAXIS
     Dosage: 400 MILLIGRAM DAILY;
     Route: 048
     Dates: start: 20111105
  6. PRIMPERAN [Concomitant]
     Indication: PROPHYLAXIS OF NAUSEA AND VOMITING
     Route: 042
     Dates: start: 20111228, end: 20111228
  7. MAG-LAX [Concomitant]
     Indication: CONSTIPATION
     Dosage: 1980 MILLIGRAM DAILY;
     Route: 048
     Dates: start: 20111206
  8. SENNOSIDE A+B CALCIUM [Concomitant]
     Indication: CONSTIPATION
     Dosage: 12 TO 24 MG ONCE DAILY
     Route: 048
     Dates: start: 20110208
  9. DEPAS [Concomitant]
     Indication: ANXIETY
     Route: 048
     Dates: start: 20111206
  10. FLUNITRAZEPAM [Concomitant]
     Indication: INSOMNIA
     Dosage: 1 MILLIGRAM DAILY;
     Route: 048
     Dates: start: 20111006
  11. HOCHUUEKKITOU [Concomitant]
     Indication: HYPOGONADISM MALE
     Dosage: 3 DOSAGE FORMS DAILY;
     Route: 048
     Dates: start: 20111012
  12. ZOVIRAX [Concomitant]
     Indication: PROPHYLAXIS
     Dosage: 200 MILLIGRAM DAILY;
     Route: 048
     Dates: start: 20111101
  13. TAKEPRON [Concomitant]
     Indication: PROPHYLAXIS
     Dosage: 30 MILLIGRAM DAILY;
     Route: 048
     Dates: start: 20111101
  14. BAKTAR [Concomitant]
     Indication: PROPHYLAXIS
     Dosage: 1 DOSAGE FORMS DAILY;
     Route: 048
     Dates: start: 20111101

REACTIONS (1)
  - Ileus [Recovered/Resolved]
